FAERS Safety Report 9247559 (Version 1)
Quarter: 2013Q2

REPORT INFORMATION
  Report Type: Report from Study
  Country: US (occurrence: US)
  Receive Date: 20130423
  Receipt Date: 20130423
  Transmission Date: 20140414
  Serious: Yes (Other)
  Sender: FDA-Public Use
  Company Number: PHEH2013US008901

PATIENT
  Age: 39 Year
  Sex: Female

DRUGS (3)
  1. ZOMETA [Suspect]
     Dosage: UNK UKN, UNK
  2. ZOLADEX [Concomitant]
     Dosage: UNK UKN, UNK
  3. ARIMIDEX [Concomitant]
     Dosage: UNK UKN, UNK

REACTIONS (1)
  - Disease progression [Unknown]
